FAERS Safety Report 9104914 (Version 1)
Quarter: 2013Q1

REPORT INFORMATION
  Report Type: Spontaneous
  Country: US (occurrence: US)
  Receive Date: 20130220
  Receipt Date: 20130220
  Transmission Date: 20140127
  Serious: No
  Sender: FDA-Public Use
  Company Number: US-TEVA-386861USA

PATIENT
  Sex: Male

DRUGS (2)
  1. NUVIGIL [Suspect]
     Route: 048
  2. STALEVO [Concomitant]

REACTIONS (2)
  - Swollen tongue [Recovered/Resolved]
  - Derealisation [Not Recovered/Not Resolved]
